FAERS Safety Report 22782696 (Version 2)
Quarter: 2024Q2

REPORT INFORMATION
  Report Type: Report from Study
  Country: JP (occurrence: JP)
  Receive Date: 20230803
  Receipt Date: 20240614
  Transmission Date: 20240716
  Serious: Yes (Hospitalization, Other)
  Sender: FDA-Public Use
  Company Number: JP-MSD-2306JPN003298J

PATIENT
  Age: 59 Year
  Sex: Male

DRUGS (11)
  1. RALTEGRAVIR POTASSIUM [Suspect]
     Active Substance: RALTEGRAVIR POTASSIUM
     Indication: HIV infection
     Dosage: 1200 MILLIGRAM/DAY
     Route: 048
     Dates: start: 20190223, end: 20210705
  2. PIFELTRO [Suspect]
     Active Substance: DORAVIRINE
     Indication: HIV infection
     Dosage: 1 DOSAGE FORM/DAY
     Route: 048
     Dates: start: 20210706
  3. SYMTUZA [Suspect]
     Active Substance: COBICISTAT\DARUNAVIR\EMTRICITABINE\TENOFOVIR ALAFENAMIDE
     Indication: HIV infection
     Dosage: 1 DOSAGE FORM/DAY
     Route: 048
     Dates: start: 20191122
  4. MINIPRESS [Concomitant]
     Active Substance: PRAZOSIN HYDROCHLORIDE
     Indication: Disease complication
     Dosage: UNK
     Route: 065
     Dates: start: 20140509
  5. ALLOPURINOL [Concomitant]
     Active Substance: ALLOPURINOL
     Indication: Disease complication
     Dosage: UNK
     Route: 065
     Dates: start: 20140509
  6. UNISIA [Concomitant]
     Active Substance: AMLODIPINE BESYLATE\CANDESARTAN CILEXETIL
     Indication: Disease complication
     Dosage: UNK
     Route: 065
     Dates: start: 20140509
  7. HERBESSER [Concomitant]
     Active Substance: DILTIAZEM HYDROCHLORIDE
     Indication: Disease complication
     Dosage: UNK
     Route: 065
     Dates: start: 20151019
  8. EZETIMIBE\ROSUVASTATIN [Concomitant]
     Active Substance: EZETIMIBE\ROSUVASTATIN
     Indication: Disease complication
     Dosage: UNK
     Route: 065
     Dates: start: 20191122
  9. JANUVIA [Concomitant]
     Active Substance: SITAGLIPTIN PHOSPHATE
     Indication: Disease complication
     Dosage: UNK
     Route: 048
     Dates: start: 20191122, end: 20240514
  10. METFORMIN HYDROCHLORIDE [Concomitant]
     Active Substance: METFORMIN HYDROCHLORIDE
     Indication: Disease complication
     Dosage: UNK
     Route: 065
     Dates: start: 20201225
  11. LEVOTHYROXINE [Concomitant]
     Active Substance: LEVOTHYROXINE\LEVOTHYROXINE SODIUM
     Indication: Disease complication
     Dosage: UNK
     Route: 065
     Dates: start: 20201225

REACTIONS (3)
  - Pancreatic duct dilatation [Not Recovered/Not Resolved]
  - Henoch-Schonlein purpura [Recovering/Resolving]
  - Atrioventricular block first degree [Not Recovered/Not Resolved]

NARRATIVE: CASE EVENT DATE: 20210706
